FAERS Safety Report 13581798 (Version 2)
Quarter: 2017Q2

REPORT INFORMATION
  Report Type: Spontaneous
  Country: CA (occurrence: CA)
  Receive Date: 20170525
  Receipt Date: 20170627
  Transmission Date: 20170830
  Serious: Yes (Disabling, Other)
  Sender: FDA-Public Use
  Company Number: CA-ASTRAZENECA-2017SE54020

PATIENT
  Age: 53 Year
  Sex: Male
  Weight: 106 kg

DRUGS (2)
  1. IRESSA [Suspect]
     Active Substance: GEFITINIB
     Indication: LUNG NEOPLASM MALIGNANT
     Dosage: DOSE UNKNOWN
     Route: 048
     Dates: start: 20141006, end: 20170520
  2. IRESSA [Suspect]
     Active Substance: GEFITINIB
     Indication: NON-SMALL CELL LUNG CANCER
     Dosage: DOSE UNKNOWN
     Route: 048
     Dates: start: 20141006, end: 20170520

REACTIONS (2)
  - Malignant neoplasm progression [Unknown]
  - Metastases to central nervous system [Recovering/Resolving]

NARRATIVE: CASE EVENT DATE: 20170508
